FAERS Safety Report 19307638 (Version 1)
Quarter: 2021Q2

REPORT INFORMATION
  Report Type: Spontaneous
  Country: US (occurrence: US)
  Receive Date: 20210525
  Receipt Date: 20210525
  Transmission Date: 20210717
  Serious: Yes (Hospitalization)
  Sender: FDA-Public Use
  Company Number: None

PATIENT
  Age: 26 Year
  Sex: Female

DRUGS (2)
  1. AMBRISENTAN TAB 10MG [Suspect]
     Active Substance: AMBRISENTAN
     Route: 048
     Dates: start: 201905
  2. TADALAFIL. [Concomitant]
     Active Substance: TADALAFIL

REACTIONS (3)
  - COVID-19 [None]
  - Nerve injury [None]
  - Autoimmune disorder [None]

NARRATIVE: CASE EVENT DATE: 20210512
